FAERS Safety Report 21233429 (Version 9)
Quarter: 2023Q1

REPORT INFORMATION
  Report Type: Report from Study
  Country: DE (occurrence: DE)
  Receive Date: 20220819
  Receipt Date: 20230310
  Transmission Date: 20230418
  Serious: Yes (Hospitalization)
  Sender: FDA-Public Use
  Company Number: DE-TAKEDA-2022TUS057261

PATIENT
  Age: 52 Year
  Sex: Male

DRUGS (97)
  1. TEDUGLUTIDE [Suspect]
     Active Substance: TEDUGLUTIDE
     Indication: Short-bowel syndrome
     Dosage: 4.25 MILLIGRAM, QD
     Route: 042
     Dates: start: 20190111, end: 20190310
  2. TEDUGLUTIDE [Suspect]
     Active Substance: TEDUGLUTIDE
     Indication: Short-bowel syndrome
     Dosage: 4.25 MILLIGRAM, QD
     Route: 042
     Dates: start: 20190111, end: 20190310
  3. TEDUGLUTIDE [Suspect]
     Active Substance: TEDUGLUTIDE
     Indication: Short-bowel syndrome
     Dosage: 4.25 MILLIGRAM, QD
     Route: 042
     Dates: start: 20190111, end: 20190310
  4. TEDUGLUTIDE [Suspect]
     Active Substance: TEDUGLUTIDE
     Indication: Short-bowel syndrome
     Dosage: 4.25 MILLIGRAM, QD
     Route: 042
     Dates: start: 20190111, end: 20190310
  5. TEDUGLUTIDE [Suspect]
     Active Substance: TEDUGLUTIDE
     Dosage: 4 MILLIGRAM, QD
     Route: 042
     Dates: start: 20190311
  6. TEDUGLUTIDE [Suspect]
     Active Substance: TEDUGLUTIDE
     Dosage: 4 MILLIGRAM, QD
     Route: 042
     Dates: start: 20190311
  7. TEDUGLUTIDE [Suspect]
     Active Substance: TEDUGLUTIDE
     Dosage: 4 MILLIGRAM, QD
     Route: 042
     Dates: start: 20190311
  8. TEDUGLUTIDE [Suspect]
     Active Substance: TEDUGLUTIDE
     Dosage: 4 MILLIGRAM, QD
     Route: 042
     Dates: start: 20190311
  9. TEDUGLUTIDE [Suspect]
     Active Substance: TEDUGLUTIDE
     Dosage: 3.8 MILLIGRAM, QD
     Route: 042
     Dates: start: 201904, end: 20190822
  10. TEDUGLUTIDE [Suspect]
     Active Substance: TEDUGLUTIDE
     Dosage: 3.8 MILLIGRAM, QD
     Route: 042
     Dates: start: 201904, end: 20190822
  11. TEDUGLUTIDE [Suspect]
     Active Substance: TEDUGLUTIDE
     Dosage: 3.8 MILLIGRAM, QD
     Route: 042
     Dates: start: 201904, end: 20190822
  12. TEDUGLUTIDE [Suspect]
     Active Substance: TEDUGLUTIDE
     Dosage: 3.8 MILLIGRAM, QD
     Route: 042
     Dates: start: 201904, end: 20190822
  13. TEDUGLUTIDE [Suspect]
     Active Substance: TEDUGLUTIDE
     Dosage: 3.8 MILLIGRAM, 4/WEEK
     Route: 042
     Dates: start: 20190823, end: 20190829
  14. TEDUGLUTIDE [Suspect]
     Active Substance: TEDUGLUTIDE
     Dosage: 3.8 MILLIGRAM, 4/WEEK
     Route: 042
     Dates: start: 20190823, end: 20190829
  15. TEDUGLUTIDE [Suspect]
     Active Substance: TEDUGLUTIDE
     Dosage: 3.8 MILLIGRAM, 4/WEEK
     Route: 042
     Dates: start: 20190823, end: 20190829
  16. TEDUGLUTIDE [Suspect]
     Active Substance: TEDUGLUTIDE
     Dosage: 3.8 MILLIGRAM, 4/WEEK
     Route: 042
     Dates: start: 20190823, end: 20190829
  17. TEDUGLUTIDE [Suspect]
     Active Substance: TEDUGLUTIDE
     Dosage: 2 MILLIGRAM, QD
     Route: 042
     Dates: start: 20190830, end: 20191014
  18. TEDUGLUTIDE [Suspect]
     Active Substance: TEDUGLUTIDE
     Dosage: 2 MILLIGRAM, QD
     Route: 042
     Dates: start: 20190830, end: 20191014
  19. TEDUGLUTIDE [Suspect]
     Active Substance: TEDUGLUTIDE
     Dosage: 2 MILLIGRAM, QD
     Route: 042
     Dates: start: 20190830, end: 20191014
  20. TEDUGLUTIDE [Suspect]
     Active Substance: TEDUGLUTIDE
     Dosage: 2 MILLIGRAM, QD
     Route: 042
     Dates: start: 20190830, end: 20191014
  21. TEDUGLUTIDE [Suspect]
     Active Substance: TEDUGLUTIDE
     Dosage: 2.5 MILLIGRAM, QD
     Route: 042
     Dates: start: 20191015, end: 20191027
  22. TEDUGLUTIDE [Suspect]
     Active Substance: TEDUGLUTIDE
     Dosage: 2.5 MILLIGRAM, QD
     Route: 042
     Dates: start: 20191015, end: 20191027
  23. TEDUGLUTIDE [Suspect]
     Active Substance: TEDUGLUTIDE
     Dosage: 2.5 MILLIGRAM, QD
     Route: 042
     Dates: start: 20191015, end: 20191027
  24. TEDUGLUTIDE [Suspect]
     Active Substance: TEDUGLUTIDE
     Dosage: 2.5 MILLIGRAM, QD
     Route: 042
     Dates: start: 20191015, end: 20191027
  25. TEDUGLUTIDE [Suspect]
     Active Substance: TEDUGLUTIDE
     Dosage: 3.5 MILLIGRAM, QD
     Route: 042
     Dates: start: 20191028, end: 20200214
  26. TEDUGLUTIDE [Suspect]
     Active Substance: TEDUGLUTIDE
     Dosage: 3.5 MILLIGRAM, QD
     Route: 042
     Dates: start: 20191028, end: 20200214
  27. TEDUGLUTIDE [Suspect]
     Active Substance: TEDUGLUTIDE
     Dosage: 3.5 MILLIGRAM, QD
     Route: 042
     Dates: start: 20191028, end: 20200214
  28. TEDUGLUTIDE [Suspect]
     Active Substance: TEDUGLUTIDE
     Dosage: 3.5 MILLIGRAM, QD
     Route: 042
     Dates: start: 20191028, end: 20200214
  29. TEDUGLUTIDE [Suspect]
     Active Substance: TEDUGLUTIDE
     Dosage: 3.2 MILLIGRAM, QD
     Route: 042
     Dates: start: 20200218
  30. TEDUGLUTIDE [Suspect]
     Active Substance: TEDUGLUTIDE
     Dosage: 3.2 MILLIGRAM, QD
     Route: 042
     Dates: start: 20200218
  31. TEDUGLUTIDE [Suspect]
     Active Substance: TEDUGLUTIDE
     Dosage: 3.2 MILLIGRAM, QD
     Route: 042
     Dates: start: 20200218
  32. TEDUGLUTIDE [Suspect]
     Active Substance: TEDUGLUTIDE
     Dosage: 3.2 MILLIGRAM, QD
     Route: 042
     Dates: start: 20200218
  33. TEDUGLUTIDE [Suspect]
     Active Substance: TEDUGLUTIDE
     Dosage: 3.2 MILLIGRAM, 4/WEEK
     Route: 042
     Dates: start: 20200810, end: 20200819
  34. TEDUGLUTIDE [Suspect]
     Active Substance: TEDUGLUTIDE
     Dosage: 3.2 MILLIGRAM, 4/WEEK
     Route: 042
     Dates: start: 20200810, end: 20200819
  35. TEDUGLUTIDE [Suspect]
     Active Substance: TEDUGLUTIDE
     Dosage: 3.2 MILLIGRAM, 4/WEEK
     Route: 042
     Dates: start: 20200810, end: 20200819
  36. TEDUGLUTIDE [Suspect]
     Active Substance: TEDUGLUTIDE
     Dosage: 3.2 MILLIGRAM, 4/WEEK
     Route: 042
     Dates: start: 20200810, end: 20200819
  37. TEDUGLUTIDE [Suspect]
     Active Substance: TEDUGLUTIDE
     Dosage: 2.6 MILLIGRAM, QD
     Route: 042
     Dates: start: 20200820, end: 202010
  38. TEDUGLUTIDE [Suspect]
     Active Substance: TEDUGLUTIDE
     Dosage: 2.6 MILLIGRAM, QD
     Route: 042
     Dates: start: 20200820, end: 202010
  39. TEDUGLUTIDE [Suspect]
     Active Substance: TEDUGLUTIDE
     Dosage: 2.6 MILLIGRAM, QD
     Route: 042
     Dates: start: 20200820, end: 202010
  40. TEDUGLUTIDE [Suspect]
     Active Substance: TEDUGLUTIDE
     Dosage: 2.6 MILLIGRAM, QD
     Route: 042
     Dates: start: 20200820, end: 202010
  41. TEDUGLUTIDE [Suspect]
     Active Substance: TEDUGLUTIDE
     Dosage: 3.2 MILLIGRAM, QD
     Route: 042
     Dates: start: 202010, end: 20210410
  42. TEDUGLUTIDE [Suspect]
     Active Substance: TEDUGLUTIDE
     Dosage: 3.2 MILLIGRAM, QD
     Route: 042
     Dates: start: 202010, end: 20210410
  43. TEDUGLUTIDE [Suspect]
     Active Substance: TEDUGLUTIDE
     Dosage: 3.2 MILLIGRAM, QD
     Route: 042
     Dates: start: 202010, end: 20210410
  44. TEDUGLUTIDE [Suspect]
     Active Substance: TEDUGLUTIDE
     Dosage: 3.2 MILLIGRAM, QD
     Route: 042
     Dates: start: 202010, end: 20210410
  45. TEDUGLUTIDE [Suspect]
     Active Substance: TEDUGLUTIDE
     Dosage: 3.2 MILLIGRAM
     Route: 042
     Dates: start: 20210412, end: 20210831
  46. TEDUGLUTIDE [Suspect]
     Active Substance: TEDUGLUTIDE
     Dosage: 3.2 MILLIGRAM
     Route: 042
     Dates: start: 20210412, end: 20210831
  47. TEDUGLUTIDE [Suspect]
     Active Substance: TEDUGLUTIDE
     Dosage: 3.2 MILLIGRAM
     Route: 042
     Dates: start: 20210412, end: 20210831
  48. TEDUGLUTIDE [Suspect]
     Active Substance: TEDUGLUTIDE
     Dosage: 3.2 MILLIGRAM
     Route: 042
     Dates: start: 20210412, end: 20210831
  49. TEDUGLUTIDE [Suspect]
     Active Substance: TEDUGLUTIDE
     Dosage: 3.2 MILLIGRAM, 4/WEEK
     Route: 042
     Dates: start: 20210901, end: 20210909
  50. TEDUGLUTIDE [Suspect]
     Active Substance: TEDUGLUTIDE
     Dosage: 3.2 MILLIGRAM, 4/WEEK
     Route: 042
     Dates: start: 20210901, end: 20210909
  51. TEDUGLUTIDE [Suspect]
     Active Substance: TEDUGLUTIDE
     Dosage: 3.2 MILLIGRAM, 4/WEEK
     Route: 042
     Dates: start: 20210901, end: 20210909
  52. TEDUGLUTIDE [Suspect]
     Active Substance: TEDUGLUTIDE
     Dosage: 3.2 MILLIGRAM, 4/WEEK
     Route: 042
     Dates: start: 20210901, end: 20210909
  53. TEDUGLUTIDE [Suspect]
     Active Substance: TEDUGLUTIDE
     Dosage: 2.8 MILLIGRAM
     Route: 042
     Dates: start: 20210909, end: 20210923
  54. TEDUGLUTIDE [Suspect]
     Active Substance: TEDUGLUTIDE
     Dosage: 2.8 MILLIGRAM
     Route: 042
     Dates: start: 20210909, end: 20210923
  55. TEDUGLUTIDE [Suspect]
     Active Substance: TEDUGLUTIDE
     Dosage: 2.8 MILLIGRAM
     Route: 042
     Dates: start: 20210909, end: 20210923
  56. TEDUGLUTIDE [Suspect]
     Active Substance: TEDUGLUTIDE
     Dosage: 2.8 MILLIGRAM
     Route: 042
     Dates: start: 20210909, end: 20210923
  57. TEDUGLUTIDE [Suspect]
     Active Substance: TEDUGLUTIDE
     Dosage: 3.2 MILLIGRAM
     Route: 042
     Dates: start: 20210924, end: 20211025
  58. TEDUGLUTIDE [Suspect]
     Active Substance: TEDUGLUTIDE
     Dosage: 3.2 MILLIGRAM
     Route: 042
     Dates: start: 20210924, end: 20211025
  59. TEDUGLUTIDE [Suspect]
     Active Substance: TEDUGLUTIDE
     Dosage: 3.2 MILLIGRAM
     Route: 042
     Dates: start: 20210924, end: 20211025
  60. TEDUGLUTIDE [Suspect]
     Active Substance: TEDUGLUTIDE
     Dosage: 3.2 MILLIGRAM
     Route: 042
     Dates: start: 20210924, end: 20211025
  61. TEDUGLUTIDE [Suspect]
     Active Substance: TEDUGLUTIDE
     Dosage: 2.8 MILLIGRAM
     Route: 042
     Dates: start: 20211027, end: 202112
  62. TEDUGLUTIDE [Suspect]
     Active Substance: TEDUGLUTIDE
     Dosage: 2.8 MILLIGRAM
     Route: 042
     Dates: start: 20211027, end: 202112
  63. TEDUGLUTIDE [Suspect]
     Active Substance: TEDUGLUTIDE
     Dosage: 2.8 MILLIGRAM
     Route: 042
     Dates: start: 20211027, end: 202112
  64. TEDUGLUTIDE [Suspect]
     Active Substance: TEDUGLUTIDE
     Dosage: 2.8 MILLIGRAM
     Route: 042
     Dates: start: 20211027, end: 202112
  65. TEDUGLUTIDE [Suspect]
     Active Substance: TEDUGLUTIDE
     Dosage: 3.2 MILLIGRAM
     Route: 042
     Dates: start: 202112, end: 202202
  66. TEDUGLUTIDE [Suspect]
     Active Substance: TEDUGLUTIDE
     Dosage: 3.2 MILLIGRAM
     Route: 042
     Dates: start: 202112, end: 202202
  67. TEDUGLUTIDE [Suspect]
     Active Substance: TEDUGLUTIDE
     Dosage: 3.2 MILLIGRAM
     Route: 042
     Dates: start: 202112, end: 202202
  68. TEDUGLUTIDE [Suspect]
     Active Substance: TEDUGLUTIDE
     Dosage: 3.2 MILLIGRAM
     Route: 042
     Dates: start: 202112, end: 202202
  69. TEDUGLUTIDE [Suspect]
     Active Substance: TEDUGLUTIDE
     Dosage: 2.8 MILLIGRAM
     Route: 042
     Dates: start: 202202, end: 20220801
  70. TEDUGLUTIDE [Suspect]
     Active Substance: TEDUGLUTIDE
     Dosage: 2.8 MILLIGRAM
     Route: 042
     Dates: start: 202202, end: 20220801
  71. TEDUGLUTIDE [Suspect]
     Active Substance: TEDUGLUTIDE
     Dosage: 2.8 MILLIGRAM
     Route: 042
     Dates: start: 202202, end: 20220801
  72. TEDUGLUTIDE [Suspect]
     Active Substance: TEDUGLUTIDE
     Dosage: 2.8 MILLIGRAM
     Route: 042
     Dates: start: 202202, end: 20220801
  73. TEDUGLUTIDE [Suspect]
     Active Substance: TEDUGLUTIDE
     Dosage: 2.3 MILLIGRAM
     Route: 042
     Dates: start: 202208
  74. TEDUGLUTIDE [Suspect]
     Active Substance: TEDUGLUTIDE
     Dosage: 2.3 MILLIGRAM
     Route: 042
     Dates: start: 202208
  75. TEDUGLUTIDE [Suspect]
     Active Substance: TEDUGLUTIDE
     Dosage: 2.3 MILLIGRAM
     Route: 042
     Dates: start: 202208
  76. TEDUGLUTIDE [Suspect]
     Active Substance: TEDUGLUTIDE
     Dosage: 2.3 MILLIGRAM
     Route: 042
     Dates: start: 202208
  77. Mebeverin aristo [Concomitant]
     Indication: Abdominal pain
     Dosage: 200 MILLIGRAM, BID
     Route: 048
     Dates: start: 20220225
  78. PANTOZOL [Concomitant]
     Active Substance: PANTOPRAZOLE SODIUM
     Indication: Urethritis
     Dosage: 40 MILLIGRAM, BID
     Route: 050
     Dates: start: 20220225, end: 20220311
  79. FENTANYL [Concomitant]
     Active Substance: FENTANYL
     Indication: Abdominal pain
     Dosage: 37.50 MILLIGRAM, QOD
     Route: 062
     Dates: start: 202203
  80. REMICADE [Concomitant]
     Active Substance: INFLIXIMAB
     Indication: Crohn^s disease
     Dosage: 450 MILLIGRAM
     Route: 042
     Dates: start: 2008
  81. BUTYLSCOPOLAMINE BROMIDE [Concomitant]
     Active Substance: BUTYLSCOPOLAMINE BROMIDE
     Indication: Abdominal pain
     Dosage: UNK
     Route: 048
     Dates: start: 201905, end: 201905
  82. PREDNISONE [Concomitant]
     Active Substance: PREDNISONE
     Indication: Arthralgia
     Dosage: 15 MILLIGRAM, QD
     Route: 048
     Dates: start: 20190618
  83. PANTOPRAZOLE SODIUM [Concomitant]
     Active Substance: PANTOPRAZOLE SODIUM
     Dosage: 20 MILLIGRAM, QD
     Route: 048
  84. POTASSIUM CHLORIDE [Concomitant]
     Active Substance: POTASSIUM CHLORIDE
     Indication: Product used for unknown indication
     Dosage: 600 MILLIGRAM, TID
     Route: 048
  85. IBUPROFEN [Concomitant]
     Active Substance: IBUPROFEN
     Indication: Arthralgia
     Dosage: 600 MILLIGRAM, QD
     Route: 048
     Dates: start: 201907
  86. Selenase [Concomitant]
     Indication: Selenium deficiency
     Dosage: 100 MICROGRAM, QD
     Route: 048
     Dates: start: 20200910
  87. TRAMADOL [Concomitant]
     Active Substance: TRAMADOL
     Indication: Flank pain
     Dosage: UNK UNK, TID
     Route: 048
     Dates: start: 20201001, end: 20201101
  88. TRAMADOL [Concomitant]
     Active Substance: TRAMADOL
     Dosage: UNK UNK, TID
     Route: 048
     Dates: start: 20201102, end: 202203
  89. CEPHALEXIN [Concomitant]
     Active Substance: CEPHALEXIN
     Indication: Catheter site injury
     Dosage: 1000 MILLIGRAM, QD
     Route: 048
     Dates: start: 20210107, end: 20210115
  90. Unacid [Concomitant]
     Indication: Infection
     Dosage: 750 MILLIGRAM, BID
     Route: 048
     Dates: start: 20210205, end: 20210209
  91. NEUROBION FORTE [Concomitant]
     Active Substance: CYANOCOBALAMIN\PYRIDOXINE HYDROCHLORIDE\THIAMINE DISULFIDE
     Indication: Vitamin B6 deficiency
     Dosage: 82.27 MILLIGRAM, QD
     Route: 048
     Dates: start: 20210308
  92. TINCTURA PAEONIA [Concomitant]
     Indication: Short-bowel syndrome
     Dosage: 60 GTT DROPS
     Route: 048
  93. ASPIRIN [Concomitant]
     Active Substance: ASPIRIN
     Indication: Prophylaxis
     Dosage: 100 MILLIGRAM, QD
     Route: 048
  94. AMOXICILLIN\CLAVULANATE POTASSIUM [Concomitant]
     Active Substance: AMOXICILLIN\CLAVULANATE POTASSIUM
     Indication: Urinary tract infection
     Dosage: 875 MILLIGRAM, TID
     Route: 048
     Dates: start: 20221109, end: 20221115
  95. INFLIXIMAB [Concomitant]
     Active Substance: INFLIXIMAB
     Indication: Crohn^s disease
     Dosage: 120 MILLIGRAM, Q2WEEKS
     Route: 058
     Dates: start: 202211
  96. VITAMIN B12 [Concomitant]
     Active Substance: CYANOCOBALAMIN
     Indication: Vitamin B12 deficiency
     Dosage: 1000 MICROGRAM
     Route: 030
     Dates: start: 20221201
  97. CITALOPRAM [Concomitant]
     Active Substance: CITALOPRAM HYDROBROMIDE
     Indication: Depression
     Dosage: 20 MILLIGRAM, QD
     Route: 048
     Dates: start: 20221111

REACTIONS (2)
  - Calculus urinary [Recovered/Resolved]
  - Weight decreased [Recovered/Resolved]

NARRATIVE: CASE EVENT DATE: 20220801
